FAERS Safety Report 10405273 (Version 1)
Quarter: 2014Q3

REPORT INFORMATION
  Report Type: Spontaneous
  Country: US (occurrence: None)
  Receive Date: 20140820
  Receipt Date: 20140820
  Transmission Date: 20150326
  Serious: Yes (Life-Threatening, Hospitalization)
  Sender: FDA-Public Use
  Company Number: FK201403310

PATIENT
  Age: 40 Year
  Sex: Female

DRUGS (1)
  1. PROGESTERONE INJECTION [Suspect]
     Active Substance: PROGESTERONE
     Indication: IN VITRO FERTILISATION
     Route: 030

REACTIONS (6)
  - Eosinophilic pneumonia [None]
  - Hypoxia [None]
  - Exposure during pregnancy [None]
  - Dyspnoea exertional [None]
  - Respiratory rate decreased [None]
  - Respiratory distress [None]
